FAERS Safety Report 5612250-7 (Version None)
Quarter: 2008Q1

REPORT INFORMATION
  Report Type: 
  Country: None (occurrence: None)
  Receive Date: 20080131
  Receipt Date: 20080131
  Transmission Date: 20080703
  Serious: No
  Sender: FDA-Public Use
  Company Number: None

PATIENT
  Sex: Female
  Weight: 89.8122 kg

DRUGS (1)
  1. COMPAZINE [Suspect]
     Indication: DEPRESSION
     Dosage: 1 A DAY PO
     Route: 048
     Dates: start: 20071211, end: 20080125

REACTIONS (2)
  - IMPAIRED WORK ABILITY [None]
  - VISION BLURRED [None]
